FAERS Safety Report 11988156 (Version 1)
Quarter: 2016Q1

REPORT INFORMATION
  Report Type: Spontaneous
  Country: US (occurrence: US)
  Receive Date: 20160202
  Receipt Date: 20160202
  Transmission Date: 20160526
  Serious: Yes (Hospitalization, Other)
  Sender: FDA-Public Use
  Company Number: US-APOTEX-2016AP006040

PATIENT
  Age: 2 Decade
  Sex: Male
  Weight: 80 kg

DRUGS (18)
  1. SUCCINYLCHOLINE [Concomitant]
     Active Substance: SUCCINYLCHOLINE
     Indication: ENDOTRACHEAL INTUBATION
     Dosage: 100 MG, UNK
     Route: 042
  2. FENTANYL. [Interacting]
     Active Substance: FENTANYL
     Indication: PAIN
     Dosage: 100 MICROG IN DIVIDED DOSE
     Route: 065
  3. MIDAZOLAM [Concomitant]
     Active Substance: MIDAZOLAM\MIDAZOLAM HYDROCHLORIDE
     Indication: PRODUCT USED FOR UNKNOWN INDICATION
     Dosage: 2 MG, UNK
     Route: 042
  4. SEVOFLURANE. [Concomitant]
     Active Substance: SEVOFLURANE
     Indication: MAINTENANCE OF ANAESTHESIA
     Dosage: 2.4%?2.9% INSPIRED
     Route: 065
  5. FENTANYL. [Interacting]
     Active Substance: FENTANYL
     Indication: INDUCTION OF ANAESTHESIA
     Dosage: 100 ?G, UNK
     Route: 042
  6. FLUOXETINE ORAL SOLUTION USP [Suspect]
     Active Substance: FLUOXETINE HYDROCHLORIDE
     Indication: DEPRESSION
     Dosage: 40 MG,DAILY
     Route: 065
  7. METHYLENE BLUE. [Interacting]
     Active Substance: METHYLENE BLUE
     Indication: SURGERY
     Dosage: 100 MG, UNK
     Route: 042
  8. METRONIDAZOLE. [Interacting]
     Active Substance: METRONIDAZOLE
     Indication: ANTIBIOTIC PROPHYLAXIS
     Dosage: 500 MG, UNK
     Route: 042
  9. ETOMIDATE. [Concomitant]
     Active Substance: ETOMIDATE
     Indication: INDUCTION OF ANAESTHESIA
     Dosage: 20 MG, UNK
     Route: 042
  10. ERTAPENEM [Concomitant]
     Active Substance: ERTAPENEM
     Indication: ANTIBIOTIC PROPHYLAXIS
     Route: 065
  11. HYDROMORPHONE [Concomitant]
     Active Substance: HYDROMORPHONE
     Indication: MAINTENANCE OF ANAESTHESIA
     Dosage: 5 MG IN DIVIDED DOSES
     Route: 042
  12. CISATRACURIUM. [Concomitant]
     Active Substance: CISATRACURIUM
     Indication: HYPOTONIA
     Dosage: 2?8 MG IN DIVIDED DOSES
     Route: 042
  13. ONDANSETRON INJECTION USP [Interacting]
     Active Substance: ONDANSETRON
     Indication: PRODUCT USED FOR UNKNOWN INDICATION
     Dosage: 4 MG, UNK
     Route: 042
  14. METOCLOPRAMIDE. [Interacting]
     Active Substance: METOCLOPRAMIDE
     Indication: PRODUCT USED FOR UNKNOWN INDICATION
     Dosage: 10 MG, UNK
     Route: 042
  15. PROPOFOL. [Concomitant]
     Active Substance: PROPOFOL
     Indication: INDUCTION OF ANAESTHESIA
     Dosage: 100 MG, UNK
     Route: 042
  16. CEFAZOLIN [Concomitant]
     Active Substance: CEFAZOLIN
     Indication: ANTIBIOTIC PROPHYLAXIS
     Dosage: 2 G, UNK
     Route: 042
  17. GLYCOPYRROLATE                     /00196202/ [Concomitant]
     Active Substance: GLYCOPYRROLATE
     Indication: MUSCLE TWITCHING
     Dosage: 0.6 MG, UNK
     Route: 042
  18. NEOSTIGMINE [Concomitant]
     Active Substance: NEOSTIGMINE
     Indication: MUSCLE TWITCHING
     Dosage: 5 MG, UNK
     Route: 042

REACTIONS (11)
  - Clonus [Recovered/Resolved]
  - Serotonin syndrome [Recovered/Resolved]
  - Trismus [Recovered/Resolved]
  - Metabolic acidosis [Recovered/Resolved]
  - Pseudomonal sepsis [Unknown]
  - Postoperative fever [Recovered/Resolved]
  - Muscle rigidity [Recovered/Resolved]
  - Drug interaction [Recovered/Resolved]
  - Hyperreflexia [Recovered/Resolved]
  - Rhabdomyolysis [Recovered/Resolved]
  - Nystagmus [Recovered/Resolved]
